FAERS Safety Report 24942374 (Version 2)
Quarter: 2025Q1

REPORT INFORMATION
  Report Type: Spontaneous
  Country: CN (occurrence: CN)
  Receive Date: 20250207
  Receipt Date: 20250217
  Transmission Date: 20250408
  Serious: Yes (Life-Threatening, Hospitalization)
  Sender: PFIZER
  Company Number: CN-PFIZER INC-PV202500014389

PATIENT
  Age: 39 Year
  Sex: Male
  Weight: 66 kg

DRUGS (8)
  1. CYTARABINE [Suspect]
     Active Substance: CYTARABINE
     Indication: Neoplasm
     Dosage: 3.5 G, 2X/DAY
     Route: 041
     Dates: start: 20250112, end: 20250113
  2. ADCETRIS [Suspect]
     Active Substance: BRENTUXIMAB VEDOTIN
     Indication: Neoplasm
     Dosage: 100 MG, 1X/DAY
     Route: 041
     Dates: start: 20250110, end: 20250110
  3. CISPLATIN [Suspect]
     Active Substance: CISPLATIN
     Indication: Neoplasm
     Dosage: 80 MG, 1X/DAY
     Route: 041
     Dates: start: 20250110, end: 20250110
  4. CISPLATIN [Suspect]
     Active Substance: CISPLATIN
     Dosage: 90 MG, 1X/DAY
     Route: 041
     Dates: start: 20250110, end: 20250110
  5. SODIUM CHLORIDE [Concomitant]
     Active Substance: SODIUM CHLORIDE
     Indication: Vehicle solution use
     Dosage: 150 ML, 1X/DAY
     Route: 041
     Dates: start: 20250110, end: 20250110
  6. DEXTROSE [Concomitant]
     Active Substance: DEXTROSE MONOHYDRATE
     Indication: Vehicle solution use
     Dosage: 476 ML, 1X/DAY
     Route: 041
     Dates: start: 20250110, end: 20250110
  7. DEXTROSE [Concomitant]
     Active Substance: DEXTROSE MONOHYDRATE
     Dosage: 462 ML, 1X/DAY
     Route: 041
     Dates: start: 20250110, end: 20250110
  8. DEXTROSE [Concomitant]
     Active Substance: DEXTROSE MONOHYDRATE
     Dosage: 500 ML, 2X/DAY
     Route: 041
     Dates: start: 20250112, end: 20250113

REACTIONS (1)
  - Myelosuppression [Recovering/Resolving]

NARRATIVE: CASE EVENT DATE: 20250121
